FAERS Safety Report 9941245 (Version 1)
Quarter: 2014Q1

REPORT INFORMATION
  Report Type: Report from Study
  Country: US (occurrence: US)
  Receive Date: 20140303
  Receipt Date: 20140303
  Transmission Date: 20141002
  Serious: No
  Sender: FDA-Public Use
  Company Number: US-ABBVIE-13P-163-1041649-00

PATIENT
  Age: 39 Year
  Sex: Male
  Weight: 90.8 kg

DRUGS (4)
  1. HUMIRA [Suspect]
     Indication: RHEUMATOID ARTHRITIS
     Dates: start: 20130109
  2. ZOLOFT [Concomitant]
     Indication: DEPRESSION
  3. TRILEPTAL [Concomitant]
     Indication: CLUSTER HEADACHE
  4. NIASPAN [Concomitant]
     Indication: BLOOD CHOLESTEROL INCREASED

REACTIONS (1)
  - Drug ineffective [Not Recovered/Not Resolved]
